FAERS Safety Report 6574138-7 (Version None)
Quarter: 2010Q1

REPORT INFORMATION
  Report Type: 
  Country: None (occurrence: None)
  Receive Date: 20100208
  Receipt Date: 20100129
  Transmission Date: 20100710
  Serious: Yes (Hospitalization, Other)
  Sender: FDA-Public Use
  Company Number: US-AMGEN-US372100

PATIENT
  Sex: Female
  Weight: 75.4 kg

DRUGS (10)
  1. NPLATE [Suspect]
     Indication: IDIOPATHIC THROMBOCYTOPENIC PURPURA
     Dates: start: 20090304, end: 20090928
  2. CORTICOSTEROID NOS [Concomitant]
  3. PREDNISONE TAB [Concomitant]
  4. URSODIOL [Concomitant]
  5. VITAMIN D [Concomitant]
  6. FOLIC ACID [Concomitant]
  7. MEPHYTON [Concomitant]
  8. VITAMIN A [Concomitant]
  9. FERROUS GLUCONATE [Concomitant]
  10. MULTIVIT [Concomitant]

REACTIONS (5)
  - ABDOMINAL PAIN [None]
  - HAEMORRHAGE [None]
  - HEADACHE [None]
  - THERAPEUTIC RESPONSE DECREASED [None]
  - THROMBOCYTOPENIA [None]
